FAERS Safety Report 15854081 (Version 1)
Quarter: 2019Q1

REPORT INFORMATION
  Report Type: Spontaneous
  Country: FR (occurrence: FR)
  Receive Date: 20190122
  Receipt Date: 20190122
  Transmission Date: 20190417
  Serious: Yes (Other)
  Sender: FDA-Public Use
  Company Number: FR-JNJFOC-20190123576

PATIENT
  Age: 29 Year
  Sex: Female
  Weight: 82 kg

DRUGS (5)
  1. ENTOCORT [Interacting]
     Active Substance: BUDESONIDE
     Indication: CROHN^S DISEASE
     Route: 048
     Dates: start: 20171223, end: 20180213
  2. NORVIR [Interacting]
     Active Substance: RITONAVIR
     Indication: HIV INFECTION
     Route: 048
     Dates: start: 20180104
  3. ABACAVIR/LAMIVUDINE [Concomitant]
     Active Substance: ABACAVIR\LAMIVUDINE
     Route: 065
  4. LEVONORGESTREL. [Concomitant]
     Active Substance: LEVONORGESTREL
     Route: 065
  5. PREZISTA [Suspect]
     Active Substance: DARUNAVIR ETHANOLATE
     Indication: HIV INFECTION
     Route: 048
     Dates: start: 20180104

REACTIONS (2)
  - Drug interaction [Recovering/Resolving]
  - Hypercorticoidism [Recovering/Resolving]

NARRATIVE: CASE EVENT DATE: 2018
